FAERS Safety Report 10401851 (Version 1)
Quarter: 2014Q3

REPORT INFORMATION
  Report Type: Spontaneous
  Country: US (occurrence: US)
  Receive Date: 20140822
  Receipt Date: 20140822
  Transmission Date: 20150326
  Serious: Yes (Death, Hospitalization)
  Sender: FDA-Public Use
  Company Number: US-ROCHE-1448748

PATIENT
  Sex: Female

DRUGS (2)
  1. AVASTIN [Suspect]
     Active Substance: BEVACIZUMAB
     Indication: PULMONARY VEIN STENOSIS
     Route: 042
  2. GLEEVEC [Concomitant]
     Active Substance: IMATINIB MESYLATE
     Indication: PULMONARY VEIN STENOSIS
     Dosage: WITH MEAL
     Route: 065

REACTIONS (8)
  - Hypophagia [Unknown]
  - Sepsis [Fatal]
  - Vomiting [Unknown]
  - Pneumonia [Unknown]
  - Venous stenosis [Unknown]
  - Off label use [Unknown]
  - Respiratory failure [Fatal]
  - Irritability [Unknown]
